FAERS Safety Report 19871435 (Version 1)
Quarter: 2021Q3

REPORT INFORMATION
  Report Type: Spontaneous
  Country: FR (occurrence: FR)
  Receive Date: 20210923
  Receipt Date: 20210923
  Transmission Date: 20211014
  Serious: Yes (Hospitalization)
  Sender: FDA-Public Use
  Company Number: FR-SUN PHARMACEUTICAL INDUSTRIES LTD-2021RR-311605

PATIENT
  Age: 56 Year
  Sex: Female
  Weight: 75.8 kg

DRUGS (8)
  1. VALACYCLOVIR [Suspect]
     Active Substance: VALACYCLOVIR HYDROCHLORIDE
     Indication: PROPHYLAXIS
     Dosage: 500 MILLIGRAM EVERY 8 HOURS
     Route: 048
     Dates: start: 20210423, end: 20210522
  2. RITUXIMAB. [Concomitant]
     Active Substance: RITUXIMAB
     Indication: MANTLE CELL LYMPHOMA STAGE IV
     Dosage: 650 MILLIGRAMS. CYCLICAL
     Route: 042
     Dates: start: 20210423, end: 20210423
  3. ZARZIO 48 MU/0,5 ML, SOLUTION INJECTABLE OU POUR PERFUSION EN SERIN [Concomitant]
     Indication: PANCYTOPENIA
     Dosage: 0.5 MILLILITER, DAILY
     Route: 059
     Dates: start: 20210427, end: 20210504
  4. BACTRIM [Suspect]
     Active Substance: SULFAMETHOXAZOLE\TRIMETHOPRIM
     Indication: PROPHYLAXIS
     Dosage: ()
     Route: 048
     Dates: start: 20210430, end: 20210508
  5. CARBOPLATINE [Concomitant]
     Active Substance: CARBOPLATIN
     Indication: MANTLE CELL LYMPHOMA STAGE IV
     Dosage: CYCLICAL
     Route: 042
     Dates: start: 20210422, end: 20210422
  6. PRIMPERAN [Concomitant]
     Active Substance: METOCLOPRAMIDE HYDROCHLORIDE
     Indication: PRODUCT USED FOR UNKNOWN INDICATION
     Dosage: 10 MILLIGRAMS EVERY 8 HOURS
     Route: 048
     Dates: start: 20210423
  7. CYTARABINE. [Concomitant]
     Active Substance: CYTARABINE
     Indication: MANTLE CELL LYMPHOMA STAGE IV
     Dosage: CYCLICAL
     Route: 042
     Dates: start: 20210422, end: 20210422
  8. ALLOPURINOL. [Concomitant]
     Active Substance: ALLOPURINOL
     Indication: PRODUCT USED FOR UNKNOWN INDICATION
     Dosage: 300 MILLIGRAM, DAILY
     Route: 048
     Dates: start: 20210423

REACTIONS (1)
  - Rash maculo-papular [Unknown]

NARRATIVE: CASE EVENT DATE: 20210502
